FAERS Safety Report 6575966-4 (Version None)
Quarter: 2010Q1

REPORT INFORMATION
  Report Type: 
  Country: None (occurrence: None)
  Receive Date: 20100209
  Receipt Date: 20100208
  Transmission Date: 20100710
  Serious: Yes (Hospitalization, Other)
  Sender: FDA-Public Use
  Company Number: AU-ROXANE LABORATORIES, INC.-2010-RO-00137RO

PATIENT
  Age: 25 Year
  Sex: Female

DRUGS (5)
  1. AZATHIOPRINE [Suspect]
  2. PREDNISOLONE [Suspect]
  3. PROSTAGLANDINS [Suspect]
     Indication: ISCHAEMIA
     Route: 042
  4. METHYLPREDNISOLONE [Suspect]
     Indication: ISCHAEMIA
  5. HEPARIN [Suspect]
     Indication: ISCHAEMIA
     Route: 042

REACTIONS (3)
  - HAEMANGIOMA [None]
  - ISCHAEMIA [None]
  - REVERSIBLE POSTERIOR LEUKOENCEPHALOPATHY SYNDROME [None]
